FAERS Safety Report 23099825 (Version 1)
Quarter: 2023Q4

REPORT INFORMATION
  Report Type: Spontaneous
  Country: US (occurrence: None)
  Receive Date: 20231023
  Receipt Date: 20231023
  Transmission Date: 20240110
  Serious: Yes (unspecified)
  Sender: FDA-Public Use
  Company Number: None

PATIENT
  Age: 65 Year
  Sex: Female
  Weight: 66.15 kg

DRUGS (9)
  1. BOTOX [Suspect]
     Active Substance: ONABOTULINUMTOXINA
     Indication: Hypertonic bladder
     Dates: start: 20230317
  2. ZOMIG [Concomitant]
     Active Substance: ZOLMITRIPTAN
  3. NURTEC ODT [Concomitant]
     Active Substance: RIMEGEPANT SULFATE
  4. MIRALAX [Concomitant]
     Active Substance: POLYETHYLENE GLYCOL 3350
  5. VITAMIN B12 [Concomitant]
     Active Substance: CYANOCOBALAMIN
  6. D [Concomitant]
  7. CALCIUM [Concomitant]
     Active Substance: CALCIUM
  8. Melationin [Concomitant]
  9. MAGNESIUM [Concomitant]
     Active Substance: MAGNESIUM

REACTIONS (5)
  - Urinary retention [None]
  - Pollakiuria [None]
  - Groin pain [None]
  - Dysuria [None]
  - Bladder disorder [None]

NARRATIVE: CASE EVENT DATE: 20230906
